FAERS Safety Report 5504659-7 (Version None)
Quarter: 2007Q4

REPORT INFORMATION
  Report Type: 
  Country: None (occurrence: None)
  Receive Date: 20071101
  Receipt Date: 20071026
  Transmission Date: 20080405
  Serious: Yes (Hospitalization)
  Sender: FDA-Public Use
  Company Number: US-BOEHRINGER INGELHEIM PHARMACEUTICALS, INC.-2007-BP-22960BP

PATIENT
  Age: 52 Year
  Sex: Female
  Weight: 65 kg

DRUGS (7)
  1. MICARDIS HCT [Suspect]
     Indication: HYPERTENSION
     Route: 048
     Dates: start: 20070914
  2. PREVACID [Concomitant]
     Dates: start: 20050101
  3. COREG [Concomitant]
     Route: 048
     Dates: start: 20070509
  4. METFORMIN HCL [Concomitant]
     Route: 048
     Dates: start: 20050101
  5. ASPIRIN [Concomitant]
     Dates: start: 20050101
  6. LANTUS [Concomitant]
     Dates: start: 20060101
  7. NOVOLOG [Concomitant]
     Dates: start: 20060101

REACTIONS (2)
  - LOSS OF CONSCIOUSNESS [None]
  - SYNCOPE [None]
